FAERS Safety Report 7014237 (Version 6)
Quarter: 2022Q3

REPORT INFORMATION
  Report Type: Spontaneous
  Country: JP (occurrence: JP)
  Receive Date: 20090608
  Receipt Date: 20220802
  Transmission Date: 20221027
  Serious: Yes (Life-Threatening, Hospitalization, Other)
  Sender: FDA-Public Use
  Company Number: JP-PFIZER INC-2009220668

PATIENT
  Age: 4 Year
  Sex: Male
  Weight: 18 kg

DRUGS (10)
  1. GABAPENTIN [Suspect]
     Active Substance: GABAPENTIN
     Indication: Epilepsy
     Dosage: 300 MG, 1X/DAY
     Route: 048
     Dates: start: 20080813, end: 20081014
  2. GABAPENTIN [Suspect]
     Active Substance: GABAPENTIN
     Dosage: 400 MG, DAILY
     Route: 048
     Dates: start: 20081015, end: 20081018
  3. VALPROATE SODIUM [Suspect]
     Active Substance: VALPROATE SODIUM
     Indication: Epilepsy
     Dosage: 400 MG, 1X/DAY
     Route: 048
     Dates: end: 20081014
  4. VALPROATE SODIUM [Suspect]
     Active Substance: VALPROATE SODIUM
     Dosage: 200 MG, 1X/DAY
     Route: 048
     Dates: start: 20081015, end: 20081018
  5. PHENYTOIN SODIUM [Suspect]
     Active Substance: PHENYTOIN SODIUM
     Indication: Epilepsy
     Dosage: 120 MG, 1X/DAY
     Route: 048
     Dates: start: 20081001, end: 20081008
  6. PHENYTOIN SODIUM [Suspect]
     Active Substance: PHENYTOIN SODIUM
     Indication: Epilepsy
     Dosage: 125 MG, 1X/DAY
     Route: 048
     Dates: start: 20081015, end: 20081018
  7. ZONISAMIDE [Concomitant]
     Active Substance: ZONISAMIDE
     Indication: Epilepsy
     Dosage: 150 MG, 1X/DAY
     Route: 048
     Dates: end: 20081018
  8. MYSTAN [Concomitant]
     Active Substance: CLOBAZAM
     Indication: Epilepsy
     Dosage: 5 MG, 1X/DAY
     Route: 048
     Dates: end: 20081014
  9. MYSTAN [Concomitant]
     Active Substance: CLOBAZAM
     Dosage: 8 MG, 1X/DAY
     Route: 048
     Dates: start: 20081015, end: 20081018
  10. RISPERDAL [Concomitant]
     Active Substance: RISPERIDONE
     Indication: Hyperkinesia
     Dosage: 0.6 G, 1X/DAY
     Route: 048
     Dates: end: 20081018

REACTIONS (1)
  - Toxic epidermal necrolysis [Recovering/Resolving]

NARRATIVE: CASE EVENT DATE: 20081017
